FAERS Safety Report 19705991 (Version 1)
Quarter: 2021Q3

REPORT INFORMATION
  Report Type: Report from Study
  Country: US (occurrence: US)
  Receive Date: 20210817
  Receipt Date: 20210817
  Transmission Date: 20211014
  Serious: Yes (Death)
  Sender: FDA-Public Use
  Company Number: US-ROCHE-2890906

PATIENT
  Age: 52 Year
  Sex: Male
  Weight: 107.2 kg

DRUGS (2)
  1. OBINUTUZUMAB. [Suspect]
     Active Substance: OBINUTUZUMAB
     Indication: MANTLE CELL LYMPHOMA
     Route: 042
     Dates: start: 20200103, end: 20200709
  2. VENETOCLAX. [Suspect]
     Active Substance: VENETOCLAX
     Indication: MANTLE CELL LYMPHOMA
     Route: 065
     Dates: start: 20200103, end: 20200709

REACTIONS (1)
  - Death [Fatal]

NARRATIVE: CASE EVENT DATE: 20210802
